FAERS Safety Report 5938149-4 (Version None)
Quarter: 2008Q4

REPORT INFORMATION
  Report Type: 
  Country: None (occurrence: None)
  Receive Date: 20081031
  Receipt Date: 20081020
  Transmission Date: 20090506
  Serious: Yes (Hospitalization, Other)
  Sender: FDA-Public Use
  Company Number: US-PFIZER INC-2008088776

PATIENT
  Sex: Female
  Weight: 104.3 kg

DRUGS (6)
  1. CHANTIX [Suspect]
     Indication: SMOKING CESSATION THERAPY
     Dates: start: 20081001, end: 20081001
  2. DRUG, UNSPECIFIED [Interacting]
  3. ABILIFY [Concomitant]
     Dosage: DAILY DOSE:15MG
  4. TEGRETOL [Concomitant]
  5. TYLENOL [Concomitant]
  6. ALBUTEROL [Concomitant]
     Indication: ASTHMA
     Route: 055

REACTIONS (6)
  - DRUG INTERACTION [None]
  - FALL [None]
  - FEELING ABNORMAL [None]
  - HYPERTENSION [None]
  - INSOMNIA [None]
  - THINKING ABNORMAL [None]
